FAERS Safety Report 6060705-6 (Version None)
Quarter: 2009Q1

REPORT INFORMATION
  Report Type: 
  Country: None (occurrence: None)
  Receive Date: 20090202
  Receipt Date: 20090102
  Transmission Date: 20090719
  Serious: No
  Sender: FDA-Public Use
  Company Number: US-BAYER-200910233NA

PATIENT
  Age: 51 Year
  Sex: Female
  Weight: 54 kg

DRUGS (1)
  1. AVELOX [Suspect]
     Indication: BRONCHITIS
     Dates: start: 20081103, end: 20081106

REACTIONS (5)
  - ARTHRALGIA [None]
  - COORDINATION ABNORMAL [None]
  - HEADACHE [None]
  - MYALGIA [None]
  - TENDONITIS [None]
